FAERS Safety Report 14602721 (Version 1)
Quarter: 2018Q1

REPORT INFORMATION
  Report Type: Spontaneous
  Country: US (occurrence: US)
  Receive Date: 20180306
  Receipt Date: 20180306
  Transmission Date: 20180509
  Serious: Yes (Other)
  Sender: FDA-Public Use
  Company Number: US-TESARO, INC-US-2018TSO01025

PATIENT

DRUGS (1)
  1. ZEJULA [Suspect]
     Active Substance: NIRAPARIB
     Indication: OVARIAN CANCER STAGE III
     Dosage: 300 MG, UNK
     Route: 065
     Dates: start: 20170908

REACTIONS (4)
  - Ovarian cancer metastatic [Unknown]
  - Drug ineffective [Unknown]
  - Carbohydrate antigen 125 increased [Unknown]
  - Off label use [Unknown]
